FAERS Safety Report 8552190-7 (Version None)
Quarter: 2012Q3

REPORT INFORMATION
  Report Type: 
  Country: None (occurrence: None)
  Receive Date: 20120731
  Receipt Date: 20120720
  Transmission Date: 20120928
  Serious: No
  Sender: FDA-Public Use
  Company Number: US-BIOGENIDEC-2012BI026570

PATIENT
  Age: 24 Year
  Sex: Female

DRUGS (2)
  1. AVONEX [Suspect]
     Indication: MULTIPLE SCLEROSIS
     Route: 030
     Dates: start: 20100928
  2. AVONEX [Suspect]
     Route: 030
     Dates: start: 20120128

REACTIONS (4)
  - TONGUE INJURY [None]
  - FACIAL PAIN [None]
  - SPEECH DISORDER [None]
  - DYSARTHRIA [None]
